FAERS Safety Report 5335869-X (Version None)
Quarter: 2007Q2

REPORT INFORMATION
  Report Type: 
  Country: None (occurrence: None)
  Receive Date: 20070228
  Receipt Date: 20061122
  Transmission Date: 20071010
  Serious: No
  Sender: FDA-Public Use
  Company Number: S06-USA-04946-01

PATIENT
  Age: 67 Year
  Sex: Male

DRUGS (10)
  1. CAMPRAL [Suspect]
     Indication: ALCOHOLISM
     Dosage: 666 MG TID PO
     Route: 048
     Dates: start: 20060901, end: 20061101
  2. CAMPRAL [Suspect]
     Indication: ALCOHOLISM
     Dosage: 666 MG TID PO
     Route: 048
     Dates: start: 20061117
  3. ASPIRIN [Concomitant]
  4. ATENOLOL [Concomitant]
  5. HYDROCHLOROTHIAZIDE [Concomitant]
  6. LIPITOR [Concomitant]
  7. LISINOPRIL [Concomitant]
  8. NORVASC [Concomitant]
  9. PAXIL [Concomitant]
  10. TRICOR [Concomitant]

REACTIONS (2)
  - ALCOHOLISM [None]
  - DIARRHOEA [None]
